FAERS Safety Report 6931318-6 (Version None)
Quarter: 2010Q3

REPORT INFORMATION
  Report Type: 
  Country: None (occurrence: None)
  Receive Date: 20100818
  Receipt Date: 20100804
  Transmission Date: 20110219
  Serious: Yes (Other)
  Sender: FDA-Public Use
  Company Number: PHHY2010US51856

PATIENT
  Sex: Female
  Weight: 83 kg

DRUGS (1)
  1. RECLAST [Suspect]
     Dosage: 5 MG

REACTIONS (2)
  - BONE DISORDER [None]
  - TOOTH LOSS [None]
